FAERS Safety Report 26002008 (Version 1)
Quarter: 2025Q4

REPORT INFORMATION
  Report Type: Spontaneous
  Country: US (occurrence: US)
  Receive Date: 20251105
  Receipt Date: 20251105
  Transmission Date: 20260118
  Serious: No
  Sender: PFIZER
  Company Number: US-PFIZER INC-202500216117

PATIENT
  Age: 79 Year
  Sex: Female

DRUGS (1)
  1. XELJANZ [Suspect]
     Active Substance: TOFACITINIB CITRATE
     Indication: Rheumatoid arthritis
     Dosage: 5 MG, DAILY
     Route: 048

REACTIONS (9)
  - Arthritis [Unknown]
  - Tenosynovitis [Unknown]
  - Synovitis [Unknown]
  - Hypertension [Unknown]
  - Red blood cell sedimentation rate increased [Unknown]
  - C-reactive protein increased [Unknown]
  - Aspartate aminotransferase increased [Unknown]
  - Hypersensitivity [Unknown]
  - Alopecia [Unknown]

NARRATIVE: CASE EVENT DATE: 20250901
